FAERS Safety Report 14861153 (Version 1)
Quarter: 2018Q2

REPORT INFORMATION
  Report Type: Spontaneous
  Country: MY (occurrence: MY)
  Receive Date: 20180508
  Receipt Date: 20180508
  Transmission Date: 20180711
  Serious: Yes (Other)
  Sender: FDA-Public Use
  Company Number: MY-BRISTOL-MYERS SQUIBB COMPANY-BMS-2018-039912

PATIENT
  Age: 33 Year
  Sex: Female

DRUGS (4)
  1. WARFARIN SODIUM. [Suspect]
     Active Substance: WARFARIN SODIUM
     Indication: PRODUCT USED FOR UNKNOWN INDICATION
     Dosage: UNK
     Route: 065
     Dates: end: 201610
  2. LOW MOLECULAR WEIGHT HEPARIN [Suspect]
     Active Substance: UNSPECIFIED INGREDIENT
     Indication: ANTITHROMBIN III DEFICIENCY
     Dosage: UNK
     Route: 065
     Dates: start: 201512, end: 201610
  3. WARFARIN SODIUM. [Suspect]
     Active Substance: WARFARIN SODIUM
     Indication: ANTITHROMBIN III DEFICIENCY
     Dosage: UNK
     Route: 065
     Dates: end: 201512
  4. ENOXAPARIN [Suspect]
     Active Substance: ENOXAPARIN
     Indication: ANTITHROMBIN III DEFICIENCY
     Dosage: 40 MG, QD
     Route: 065
     Dates: start: 201512, end: 201610

REACTIONS (2)
  - Abortion spontaneous [Unknown]
  - Maternal exposure during pregnancy [Recovered/Resolved]
